FAERS Safety Report 8607265-0 (Version None)
Quarter: 2012Q3

REPORT INFORMATION
  Report Type: 
  Country: None (occurrence: None)
  Receive Date: 20120821
  Receipt Date: 20120814
  Transmission Date: 20120928
  Serious: Yes (Hospitalization)
  Sender: FDA-Public Use
  Company Number: US-AMGEN-USACT2012048006

PATIENT
  Age: 66 Year
  Sex: Female
  Weight: 160.8 kg

DRUGS (14)
  1. HUMALOG [Concomitant]
     Dosage: 5 MG,WITH EACH MEAL
     Route: 058
  2. SIMVASTATIN [Concomitant]
     Dosage: 80 MG, QHS
     Route: 048
  3. DARBEPOETIN ALFA [Suspect]
     Indication: CARDIAC FAILURE
     Dosage: UNK
     Dates: start: 20070124
  4. ALLOPURINOL [Concomitant]
     Dosage: 300 MG, QD
     Route: 048
  5. NORVASC [Concomitant]
     Dosage: 10 MG, QD
     Route: 048
  6. COREG [Concomitant]
     Dosage: 37.5 MG, BID
     Route: 048
  7. LISINOPRIL [Concomitant]
     Dosage: 40 MG, QD
     Route: 048
  8. METFORMIN HCL [Concomitant]
     Dosage: 1000 MG, BID
     Route: 048
  9. LIPITOR [Concomitant]
     Dosage: 80 MG, QHS
     Route: 048
  10. SULFAMETHOXAZOLE [Concomitant]
     Dosage: UNK UNK, BID
  11. BYETTA [Concomitant]
     Dosage: 10 MUG, TID
     Route: 058
  12. ASPIRIN [Concomitant]
     Dosage: 325 MG, QD
     Route: 048
  13. FUROSEMIDE [Concomitant]
     Dosage: 0.25 DF, QD
     Route: 048
  14. LANTUS [Concomitant]
     Dosage: 40 UNIT, QHS
     Route: 058

REACTIONS (1)
  - CELLULITIS [None]
